FAERS Safety Report 25665616 (Version 2)
Quarter: 2025Q3

REPORT INFORMATION
  Report Type: Spontaneous
  Country: US (occurrence: US)
  Receive Date: 20250811
  Receipt Date: 20250929
  Transmission Date: 20251020
  Serious: No
  Sender: LUPIN
  Company Number: US-LUPIN PHARMACEUTICALS INC.-2025-07176

PATIENT

DRUGS (1)
  1. ALBUTEROL SULFATE [Suspect]
     Active Substance: ALBUTEROL SULFATE
     Indication: Asthma
     Dosage: BID (2 INHALERS TWICE A DAY, TWO IN THE MORNING AND TWO IN THE AFTERNOON)

REACTIONS (3)
  - Device delivery system issue [Unknown]
  - Circumstance or information capable of leading to medication error [Unknown]
  - No adverse event [Unknown]
